FAERS Safety Report 25104042 (Version 1)
Quarter: 2025Q1

REPORT INFORMATION
  Report Type: Spontaneous
  Country: NL (occurrence: NL)
  Receive Date: 20250321
  Receipt Date: 20250321
  Transmission Date: 20250409
  Serious: Yes (Other)
  Sender: TEVA
  Company Number: None

PATIENT
  Age: 73 Year
  Sex: Male
  Weight: 59 kg

DRUGS (4)
  1. LORAZEPAM [Suspect]
     Active Substance: LORAZEPAM
     Indication: Anxiety disorder
     Route: 065
     Dates: start: 19690517
  2. HALOPERIDOL [Suspect]
     Active Substance: HALOPERIDOL
     Indication: Affective disorder
     Dosage: 5 DROPS TWICE A DAY; BRAND NAME NOT SPECIFIED
     Route: 065
     Dates: start: 19751124
  3. ACENOCOUMAROL [Concomitant]
     Active Substance: ACENOCOUMAROL
     Indication: Product used for unknown indication
     Route: 048
  4. CIPROFIBRATE [Concomitant]
     Active Substance: CIPROFIBRATE
     Indication: Product used for unknown indication
     Route: 048

REACTIONS (5)
  - Erectile dysfunction [Recovered/Resolved]
  - Aggression [Recovered/Resolved]
  - Confusional state [Recovered/Resolved]
  - Restlessness [Recovered/Resolved]
  - Derealisation [Recovered/Resolved]
